FAERS Safety Report 5444543-0 (Version None)
Quarter: 2007Q3

REPORT INFORMATION
  Report Type: 
  Country: None (occurrence: None)
  Receive Date: 20070904
  Receipt Date: 20070904
  Transmission Date: 20080115
  Serious: Yes (Death, Life-Threatening, Hospitalization)
  Sender: FDA-Public Use
  Company Number: None

PATIENT
  Age: 43 Year
  Sex: Male

DRUGS (6)
  1. HYDROMORPHONE HCL [Suspect]
     Indication: PAIN
     Dosage: 0.25MG  Q20MIN;  1HL 0.75MG  PCA  IV
     Route: 042
     Dates: start: 20061224, end: 20061228
  2. ADVAIR DISKUS 100/50 [Concomitant]
  3. PREDNISONE TAB [Concomitant]
  4. ALBUTEROL [Concomitant]
  5. METOCLOPRAMIDE [Concomitant]
  6. HYDROCODONE [Concomitant]

REACTIONS (3)
  - RESPIRATORY DEPRESSION [None]
  - SEDATION [None]
  - WEANING FAILURE [None]
